FAERS Safety Report 15297054 (Version 1)
Quarter: 2018Q3

REPORT INFORMATION
  Report Type: Spontaneous
  Country: US (occurrence: US)
  Receive Date: 20180807
  Receipt Date: 20180807
  Transmission Date: 20181010
  Serious: Yes (Other)
  Sender: FDA-Public Use
  Company Number: None

PATIENT
  Age: 87 Year
  Sex: Female
  Weight: 72.57 kg

DRUGS (14)
  1. AMMONIUM LACTATE CREAM, 12% [Suspect]
     Active Substance: AMMONIUM LACTATE
     Indication: HYPERKERATOSIS
     Dosage: ?          QUANTITY:2 DF DOSAGE FORM;?
     Route: 061
     Dates: start: 20180626, end: 20180630
  2. SIMVASTATIN. [Concomitant]
     Active Substance: SIMVASTATIN
  3. DOCALACE [Concomitant]
  4. FUROSEMIDE. [Concomitant]
     Active Substance: FUROSEMIDE
  5. VITAMIN D [Concomitant]
     Active Substance: CHOLECALCIFEROL
  6. PAROXETINE 10MG [Concomitant]
     Active Substance: PAROXETINE HYDROCHLORIDE
  7. SOTALOL. [Concomitant]
     Active Substance: SOTALOL
  8. SPIRONOLACTONE. [Concomitant]
     Active Substance: SPIRONOLACTONE
  9. PANTOPRAZOLE [Concomitant]
     Active Substance: PANTOPRAZOLE
  10. LEVOTHYROXINE 50MCG [Concomitant]
     Active Substance: LEVOTHYROXINE
  11. WARFARIN SODIUM. [Concomitant]
     Active Substance: WARFARIN SODIUM
  12. PRESERVISION AREDS 2 [Concomitant]
     Active Substance: MINERALS\VITAMINS
  13. SYSTANE (HYPROMELLOSE 2910 (4000 MPA.S)) [Concomitant]
     Active Substance: HYPROMELLOSE 2910 (4000 MPA.S)
  14. METOPROLOL 12.5MG [Concomitant]

REACTIONS (2)
  - Oral discomfort [None]
  - Burning sensation [None]

NARRATIVE: CASE EVENT DATE: 20180626
